FAERS Safety Report 9631616 (Version 4)
Quarter: 2013Q4

REPORT INFORMATION
  Report Type: Spontaneous
  Country: BE (occurrence: None)
  Receive Date: 20131001
  Receipt Date: 20131112
  Transmission Date: 20140711
  Serious: Yes (Other)
  Sender: FDA-Public Use
  Company Number: 2013038073

PATIENT
  Age: 10 Year
  Sex: Male

DRUGS (4)
  1. PRIVIGEN [Suspect]
     Indication: IMMUNE THROMBOCYTOPENIC PURPURA
     Route: 042
     Dates: start: 20130606, end: 20130606
  2. OMEPRAZOLE [Concomitant]
  3. CLARITHROMYCIN [Concomitant]
  4. AMOXICILLINE (AMOXICILLIN TRIHYDRATE) [Concomitant]

REACTIONS (4)
  - Neutropenia [None]
  - Neutrophil count decreased [None]
  - Neutrophil count increased [None]
  - Leukopenia [None]
